FAERS Safety Report 26188793 (Version 2)
Quarter: 2025Q4

REPORT INFORMATION
  Report Type: Spontaneous
  Country: US (occurrence: US)
  Receive Date: 20251222
  Receipt Date: 20251226
  Transmission Date: 20260117
  Serious: No
  Sender: SANDOZ
  Company Number: US-SANDOZ-SDZ2025US095297

PATIENT
  Sex: Female

DRUGS (2)
  1. CLARITHROMYCIN [Interacting]
     Active Substance: CLARITHROMYCIN
     Indication: Bronchitis
     Dosage: UNK
  2. IBRANCE [Interacting]
     Active Substance: PALBOCICLIB
     Indication: Product used for unknown indication
     Dosage: UNK

REACTIONS (3)
  - Taste disorder [Unknown]
  - Dry mouth [Unknown]
  - Drug interaction [Unknown]
